FAERS Safety Report 19088391 (Version 1)
Quarter: 2021Q2

REPORT INFORMATION
  Report Type: Spontaneous
  Country: US (occurrence: US)
  Receive Date: 20210402
  Receipt Date: 20210402
  Transmission Date: 20210717
  Serious: Yes (Hospitalization)
  Sender: FDA-Public Use
  Company Number: US-ELI_LILLY_AND_COMPANY-US202103015236

PATIENT
  Sex: Male
  Weight: 114.8 kg

DRUGS (1)
  1. BAMLANIVIMAB 700MG [Suspect]
     Active Substance: BAMLANIVIMAB
     Indication: COVID-19
     Dosage: 700 MG, SINGLE
     Route: 042
     Dates: start: 20210318, end: 20210318

REACTIONS (10)
  - Hemiparesis [Unknown]
  - Fall [Unknown]
  - Fatigue [Unknown]
  - Magnetic resonance imaging head abnormal [Unknown]
  - Skin abrasion [Unknown]
  - Tremor [Unknown]
  - Asthenia [Unknown]
  - Hyperglycaemia [Unknown]
  - Confusional state [Unknown]
  - Dehydration [Unknown]
